FAERS Safety Report 10990322 (Version 1)
Quarter: 2015Q1

REPORT INFORMATION
  Report Type: Spontaneous
  Country: US (occurrence: None)
  Receive Date: 20150326
  Receipt Date: 20150326
  Transmission Date: 20150721
  Serious: No
  Sender: FDA-Public Use
  Company Number: 1000073179

PATIENT
  Sex: Female

DRUGS (1)
  1. LINZESS [Suspect]
     Active Substance: LINACLOTIDE
     Indication: CONSTIPATION
     Dosage: 72.5 MCG
     Route: 048
     Dates: start: 201412

REACTIONS (4)
  - Flatulence [None]
  - Diarrhoea [None]
  - Abdominal distension [None]
  - Intentional product misuse [None]
